FAERS Safety Report 11100047 (Version 1)
Quarter: 2015Q2

REPORT INFORMATION
  Report Type: Spontaneous
  Country: US (occurrence: None)
  Receive Date: 20150507
  Receipt Date: 20150507
  Transmission Date: 20150821
  Serious: Yes (Hospitalization)
  Sender: FDA-Public Use
  Company Number: None

PATIENT
  Age: 68 Year
  Sex: Female

DRUGS (11)
  1. MAGNESIUM OXIDE. [Concomitant]
     Active Substance: MAGNESIUM OXIDE
  2. CALCITRIOL. [Concomitant]
     Active Substance: CALCITRIOL
  3. CARVEDILOL. [Concomitant]
     Active Substance: CARVEDILOL
  4. OMEPRAZOLE. [Concomitant]
     Active Substance: OMEPRAZOLE
  5. OXYCODONE [Concomitant]
     Active Substance: OXYCODONE
  6. CYANOCOBALAMIN. [Concomitant]
     Active Substance: CYANOCOBALAMIN
  7. ISOSORBIDE DINITRATE. [Concomitant]
     Active Substance: ISOSORBIDE DINITRATE
  8. NITROFURANTOIN. [Suspect]
     Active Substance: NITROFURANTOIN
     Dates: start: 20130328, end: 20131210
  9. BUMETANIDE. [Concomitant]
     Active Substance: BUMETANIDE
  10. CLOPIDOGREL [Concomitant]
     Active Substance: CLOPIDOGREL BISULFATE
  11. METFORMIN [Concomitant]
     Active Substance: METFORMIN HYDROCHLORIDE

REACTIONS (12)
  - Drug-induced liver injury [None]
  - Hepatic encephalopathy [None]
  - Blood albumin decreased [None]
  - Portal hypertension [None]
  - Chronic hepatitis [None]
  - Hepatitis acute [None]
  - Deep vein thrombosis [None]
  - Pulmonary embolism [None]
  - Hepatic cirrhosis [None]
  - Biliary tract disorder [None]
  - Cholestasis [None]
  - Injury [None]

NARRATIVE: CASE EVENT DATE: 20131210
